FAERS Safety Report 4764308-2 (Version None)
Quarter: 2005Q3

REPORT INFORMATION
  Report Type: 
  Country: None (occurrence: None)
  Receive Date: 20050906
  Receipt Date: 20050823
  Transmission Date: 20060218
  Serious: Yes (Other)
  Sender: FDA-Public Use
  Company Number: USA0508104435

PATIENT
  Age: 23 Year
  Sex: Male
  Weight: 80 kg

DRUGS (5)
  1. XIGRIS [Suspect]
     Indication: SEPSIS
     Dosage: 24 UG/KG/HR
     Dates: start: 20050802, end: 20050802
  2. IMIPENEM [Concomitant]
  3. VANCOMYCIN [Concomitant]
  4. FLAGYL [Concomitant]
  5. PREVACID [Concomitant]

REACTIONS (3)
  - ALANINE AMINOTRANSFERASE INCREASED [None]
  - DISSEMINATED INTRAVASCULAR COAGULATION [None]
  - INTERNATIONAL NORMALISED RATIO INCREASED [None]
